FAERS Safety Report 15396195 (Version 1)
Quarter: 2018Q3

REPORT INFORMATION
  Report Type: Other
  Country: US (occurrence: US)
  Receive Date: 20180918
  Receipt Date: 20180918
  Transmission Date: 20181010
  Serious: No
  Sender: FDA-Public Use
  Company Number: US-LEADIANT BIOSCIENCES INC-2017STPI000914

PATIENT
  Sex: Female

DRUGS (1)
  1. MATULANE [Suspect]
     Active Substance: PROCARBAZINE HYDROCHLORIDE
     Indication: BRAIN NEOPLASM MALIGNANT
     Dosage: 50 MG ALT. WITH 100 MG ON DAYS 8 ? 21 OF CYCLE
     Route: 048
     Dates: start: 20170601

REACTIONS (7)
  - Platelet count decreased [Unknown]
  - Paraesthesia [Unknown]
  - Constipation [Unknown]
  - Fatigue [Unknown]
  - Red blood cell count decreased [Unknown]
  - Nausea [Unknown]
  - White blood cell count decreased [Unknown]

NARRATIVE: CASE EVENT DATE: 2017
